FAERS Safety Report 23159877 (Version 1)
Quarter: 2023Q4

REPORT INFORMATION
  Report Type: Spontaneous
  Country: CN (occurrence: CN)
  Receive Date: 20231108
  Receipt Date: 20231108
  Transmission Date: 20240109
  Serious: Yes (Hospitalization)
  Sender: FDA-Public Use
  Company Number: CN-Merck Healthcare KGaA-2023484607

PATIENT
  Age: 59 Year
  Sex: Female

DRUGS (3)
  1. ERBITUX [Suspect]
     Active Substance: CETUXIMAB
     Indication: Rectal cancer metastatic
     Dosage: 0.500 G, UNKNOWN
     Route: 041
     Dates: start: 20230822, end: 20230822
  2. ERBITUX [Suspect]
     Active Substance: CETUXIMAB
     Dosage: 0.200 G, UNKNOWN
     Route: 041
     Dates: start: 20230822, end: 20230822
  3. IRINOTECAN HYDROCHLORIDE [Suspect]
     Active Substance: IRINOTECAN HYDROCHLORIDE
     Indication: Rectal cancer metastatic
     Dosage: 0.250 G, DAILY
     Route: 041
     Dates: start: 20230822, end: 20230822

REACTIONS (1)
  - Myelosuppression [Recovering/Resolving]

NARRATIVE: CASE EVENT DATE: 20230906
